FAERS Safety Report 14257288 (Version 1)
Quarter: 2017Q4

REPORT INFORMATION
  Report Type: Spontaneous
  Country: US (occurrence: US)
  Receive Date: 20171207
  Receipt Date: 20171207
  Transmission Date: 20180321
  Serious: No
  Sender: FDA-Public Use
  Company Number: US-CIPLA LTD.-2017US08025

PATIENT

DRUGS (2)
  1. GABAPENTIN. [Suspect]
     Active Substance: GABAPENTIN
     Indication: NEURALGIA
     Dosage: 300 MG, UNK
     Route: 065
  2. GABAPENTIN. [Suspect]
     Active Substance: GABAPENTIN
     Dosage: 100 MG, UNK
     Route: 065

REACTIONS (4)
  - Fatigue [Unknown]
  - Drug ineffective [Unknown]
  - Peripheral swelling [Unknown]
  - Joint swelling [Unknown]
